FAERS Safety Report 15906225 (Version 1)
Quarter: 2019Q1

REPORT INFORMATION
  Report Type: Spontaneous
  Country: US (occurrence: US)
  Receive Date: 20190110
  Receipt Date: 20190110
  Transmission Date: 20190417
  Serious: No
  Sender: FDA-Public Use
  Company Number: None

PATIENT
  Age: 63 Year
  Sex: Female

DRUGS (1)
  1. TYKERB [Suspect]
     Active Substance: LAPATINIB DITOSYLATE
     Dates: start: 20181201

REACTIONS (5)
  - Dysgeusia [None]
  - Diarrhoea [None]
  - Eye infection [None]
  - Sinusitis [None]
  - Decreased appetite [None]

NARRATIVE: CASE EVENT DATE: 20181214
